FAERS Safety Report 7307826-5 (Version None)
Quarter: 2011Q1

REPORT INFORMATION
  Report Type: 
  Country: None (occurrence: None)
  Receive Date: 20110223
  Receipt Date: 20110210
  Transmission Date: 20110831
  Serious: Yes (Disabling, Other)
  Sender: FDA-Public Use
  Company Number: US-ELI_LILLY_AND_COMPANY-US201102003250

PATIENT
  Sex: Female

DRUGS (1)
  1. HUMALOG [Suspect]
     Indication: TYPE 1 DIABETES MELLITUS
     Dosage: UNK, OTHER
     Dates: start: 20091201

REACTIONS (10)
  - FAILURE TO THRIVE [None]
  - MOTOR DYSFUNCTION [None]
  - MEMORY IMPAIRMENT [None]
  - BALANCE DISORDER [None]
  - BLOOD GLUCOSE FLUCTUATION [None]
  - PERSONALITY DISORDER [None]
  - PERSONALITY CHANGE [None]
  - BLOOD GLUCOSE INCREASED [None]
  - BLOOD GLUCOSE DECREASED [None]
  - POOR QUALITY SLEEP [None]
